FAERS Safety Report 17955902 (Version 1)
Quarter: 2020Q2

REPORT INFORMATION
  Report Type: Report from Study
  Country: BR (occurrence: BR)
  Receive Date: 20200629
  Receipt Date: 20200629
  Transmission Date: 20200714
  Serious: Yes (Life-Threatening, Hospitalization, Other)
  Sender: FDA-Public Use
  Company Number: ALC2020BR002376

PATIENT

DRUGS (8)
  1. SOMALGIN CARDIO [Concomitant]
     Active Substance: ASPIRIN\DIHYDROXYALUMINUM AMINOACETATE ANHYDROUS\MAGNESIUM CARBONATE
     Indication: PRODUCT USED FOR UNKNOWN INDICATION
     Dosage: UNK
     Route: 065
  2. GALVUS MET [Suspect]
     Active Substance: METFORMIN HYDROCHLORIDE\VILDAGLIPTIN
     Indication: DIABETES MELLITUS
     Dosage: 1 DF (VILDAGLIPTIN 50MG AND METFORMIN 500MG), BID (ONE IN MORNING AND ONE AT NIGHT) (APPROX.10 YEARS
     Route: 048
  3. CONCARDIO [Concomitant]
     Active Substance: BISOPROLOL FUMARATE
     Indication: PRODUCT USED FOR UNKNOWN INDICATION
     Dosage: UNK MG
     Route: 065
  4. TRAVATAN [Suspect]
     Active Substance: TRAVOPROST
     Dosage: 1 DRP QD (IN ONE EYE)
     Route: 065
  5. SYSTANE (HYPROMELLOSE 2910 (4000 MPA.S)) [Suspect]
     Active Substance: HYPROMELLOSE 2910 (4000 MPA.S)
     Indication: PRODUCT USED FOR UNKNOWN INDICATION
     Dosage: UNK
     Route: 065
  6. DIOVAN [Suspect]
     Active Substance: VALSARTAN
     Indication: HYPERTENSION
     Dosage: 80 MG UNK (2 OR 1 TABLET)
     Route: 065
  7. DIOVAN [Suspect]
     Active Substance: VALSARTAN
     Dosage: 80 MG, BID
     Route: 048
  8. TRAVATAN [Suspect]
     Active Substance: TRAVOPROST
     Indication: GLAUCOMA
     Dosage: 2.5 MG, QD (FROM 5 OR 6 MONTHS)
     Route: 047

REACTIONS (19)
  - Blood pressure fluctuation [Recovering/Resolving]
  - Cardiac disorder [Unknown]
  - H1N1 influenza [Recovering/Resolving]
  - Intraocular pressure decreased [Not Recovered/Not Resolved]
  - Labyrinthitis [Unknown]
  - Malaise [Unknown]
  - Coma [Recovering/Resolving]
  - Glaucoma [Not Recovered/Not Resolved]
  - Eye irritation [Not Recovered/Not Resolved]
  - Hyposmia [Recovering/Resolving]
  - Ageusia [Recovering/Resolving]
  - Confusional state [Unknown]
  - Central auditory processing disorder [Not Recovered/Not Resolved]
  - Deafness [Unknown]
  - Nervousness [Unknown]
  - Emotional disorder [Unknown]
  - Hypertension [Unknown]
  - Memory impairment [Recovering/Resolving]
  - Ear disorder [Unknown]

NARRATIVE: CASE EVENT DATE: 201608
